FAERS Safety Report 7875159-4 (Version None)
Quarter: 2011Q4

REPORT INFORMATION
  Report Type: 
  Country: None (occurrence: None)
  Receive Date: 20111031
  Receipt Date: 20111019
  Transmission Date: 20120403
  Serious: No
  Sender: FDA-Public Use
  Company Number: US-BIOGENIDEC-2011BI039998

PATIENT
  Sex: Female

DRUGS (3)
  1. REBIF [Concomitant]
     Indication: MULTIPLE SCLEROSIS
  2. AVONEX [Suspect]
     Route: 030
     Dates: start: 20080326, end: 20110406
  3. AVONEX [Suspect]
     Indication: MULTIPLE SCLEROSIS
     Route: 030
     Dates: start: 20111010

REACTIONS (3)
  - PAIN [None]
  - WEIGHT DECREASED [None]
  - PYREXIA [None]
